FAERS Safety Report 6242574-4 (Version None)
Quarter: 2009Q2

REPORT INFORMATION
  Report Type: 
  Country: None (occurrence: None)
  Receive Date: 20090617
  Receipt Date: 20071121
  Transmission Date: 20091009
  Serious: No
  Sender: FDA-Public Use
  Company Number: 269578

PATIENT
  Age: 85 Year
  Sex: Female

DRUGS (1)
  1. LEVEMIR [Suspect]
     Indication: DIABETES MELLITUS
     Dosage: QD, SUBCUTANEOUS
     Route: 058

REACTIONS (1)
  - URTICARIA [None]
